FAERS Safety Report 11245424 (Version 3)
Quarter: 2015Q3

REPORT INFORMATION
  Report Type: Report from Study
  Country: DE (occurrence: DE)
  Receive Date: 20150707
  Receipt Date: 20150908
  Transmission Date: 20151125
  Serious: Yes (Death, Hospitalization, Other)
  Sender: FDA-Public Use
  Company Number: DE-BAXALTA-2015BAX000753

PATIENT
  Age: 62 Year
  Sex: Female

DRUGS (3)
  1. SUBCUVIA [Suspect]
     Active Substance: HUMAN IMMUNOGLOBULIN G
     Dosage: 50 ML, 2X A WEEK
     Route: 058
  2. SUBCUVIA [Suspect]
     Active Substance: HUMAN IMMUNOGLOBULIN G
     Dosage: 40 ML, 1X A WEEK
     Route: 058
     Dates: start: 20141008, end: 20141008
  3. SUBCUVIA [Suspect]
     Active Substance: HUMAN IMMUNOGLOBULIN G
     Indication: IMMUNODEFICIENCY COMMON VARIABLE
     Dosage: 40 ML, 2X A WEEK
     Route: 058
     Dates: start: 20141008, end: 20141224

REACTIONS (11)
  - Lymphoma [Not Recovered/Not Resolved]
  - Abdominal pain [Not Recovered/Not Resolved]
  - Oedema [Not Recovered/Not Resolved]
  - Splenic rupture [Not Recovered/Not Resolved]
  - Pyrexia [Recovered/Resolved]
  - Death [Fatal]
  - General physical health deterioration [Not Recovered/Not Resolved]
  - Blood test abnormal [Recovering/Resolving]
  - Blood test abnormal [Unknown]
  - Small intestinal perforation [Not Recovered/Not Resolved]
  - Stomatitis [Unknown]

NARRATIVE: CASE EVENT DATE: 20141228
